FAERS Safety Report 7129180-4 (Version None)
Quarter: 2010Q4

REPORT INFORMATION
  Report Type: 
  Country: None (occurrence: None)
  Receive Date: 20101130
  Receipt Date: 20101124
  Transmission Date: 20110411
  Serious: Yes (Hospitalization, Disabling)
  Sender: FDA-Public Use
  Company Number: US-MERCK-0712USA09245

PATIENT
  Age: 55 Year
  Sex: Female
  Weight: 67 kg

DRUGS (13)
  1. FOSAMAX [Suspect]
     Indication: OSTEOPENIA
     Route: 048
     Dates: start: 19980901, end: 20010101
  2. FOSAMAX [Suspect]
     Indication: OSTEOPOROSIS
     Route: 048
     Dates: start: 19980901, end: 20010101
  3. VIOXX [Concomitant]
     Indication: OSTEOARTHRITIS
     Route: 048
  4. PRILOSEC [Concomitant]
     Indication: GASTROOESOPHAGEAL REFLUX DISEASE
     Route: 048
  5. INDERAL [Concomitant]
     Indication: MITRAL VALVE PROLAPSE
     Route: 065
  6. ZOCOR [Concomitant]
     Indication: BLOOD CHOLESTEROL INCREASED
     Route: 048
  7. ZYRTEC [Concomitant]
     Indication: HYPERSENSITIVITY
     Route: 065
  8. SINGULAIR [Concomitant]
     Indication: HYPERSENSITIVITY
     Route: 048
  9. FLEXERIL [Concomitant]
     Indication: MUSCLE SPASMS
     Route: 048
  10. OS-CAL + D [Concomitant]
     Route: 065
  11. CENTRUM SILVER [Concomitant]
     Route: 065
  12. FOSAMAX PLUS D [Suspect]
     Indication: OSTEOPOROSIS
     Route: 048
     Dates: start: 20010301, end: 20061028
  13. SUMATRIPTAN SUCCINATE (IMITREX) [Concomitant]
     Indication: MIGRAINE
     Route: 030

REACTIONS (40)
  - ABSCESS JAW [None]
  - ANAEMIA [None]
  - ANXIETY [None]
  - ARTHRALGIA [None]
  - ARTHROPATHY [None]
  - BLOOD TRIGLYCERIDES INCREASED [None]
  - BONE DENSITY DECREASED [None]
  - BONE DISORDER [None]
  - BRONCHITIS [None]
  - BRONCHOSPASM [None]
  - CATARACT [None]
  - CELLULITIS [None]
  - DENTAL CARIES [None]
  - DENTAL FISTULA [None]
  - DEPRESSION [None]
  - DIVERTICULUM [None]
  - DYSLIPIDAEMIA [None]
  - FATIGUE [None]
  - FIBULA FRACTURE [None]
  - HAEMATOCRIT DECREASED [None]
  - HAEMORRHOIDS [None]
  - HYPERTENSION [None]
  - HYPOTENSION [None]
  - IMPAIRED HEALING [None]
  - INSOMNIA [None]
  - INTRADUCTAL PAPILLOMA OF BREAST [None]
  - LOOSE TOOTH [None]
  - LUDWIG ANGINA [None]
  - MUSCLE SPASMS [None]
  - NAUSEA [None]
  - OSTEOMYELITIS [None]
  - OSTEONECROSIS OF JAW [None]
  - OSTEOSCLEROSIS [None]
  - SLEEP APNOEA SYNDROME [None]
  - TENDONITIS [None]
  - TENOSYNOVITIS [None]
  - TOOTH ABSCESS [None]
  - TOOTH DISORDER [None]
  - TOOTH FRACTURE [None]
  - VOMITING [None]
